FAERS Safety Report 25668898 (Version 2)
Quarter: 2025Q4

REPORT INFORMATION
  Report Type: Spontaneous
  Country: US (occurrence: US)
  Receive Date: 20250812
  Receipt Date: 20251009
  Transmission Date: 20260119
  Serious: Yes (Hospitalization)
  Sender: LEO PHARM
  Company Number: US-LEO Pharma-381918

PATIENT
  Age: 29 Year
  Sex: Female

DRUGS (6)
  1. ADBRY [Suspect]
     Active Substance: TRALOKINUMAB-LDRM
     Indication: Dermatitis atopic
     Dosage: ON DAY 1
     Route: 058
     Dates: start: 202507, end: 202507
  2. ADBRY [Suspect]
     Active Substance: TRALOKINUMAB-LDRM
     Indication: Dermatitis atopic
     Dosage: STARTING ON DAY 15; TREATMENT REPORTED AS ONGOING
     Route: 058
     Dates: start: 2025
  3. HYDROCORTISONE [Concomitant]
     Active Substance: HYDROCORTISONE
     Indication: Eczema
     Dosage: TWICE PER DAY 2 DAYS ON AND 2 DAYS OFF
     Route: 003
  4. TACROLIMUS [Concomitant]
     Active Substance: TACROLIMUS
     Indication: Rash
     Dosage: APPLY TWICE DAILY APPLY TWICE PER DAY TO RASHES ON ARMS, LEGS FACE, TRUNK 2 DAYS ON AND 2 DAYS ALTER
     Route: 003
  5. HYDROXYZINE PAMOATE [Concomitant]
     Active Substance: HYDROXYZINE PAMOATE
     Indication: Pruritus
     Dosage: CAPSULE 1 EVERY 6 ? 8 HOURS AS NEEDED FOR SEVERE ITCH
  6. PREDNISONE [Concomitant]
     Active Substance: PREDNISONE
     Indication: Rash
     Dosage: PREDNISONE 10 MG FOR RASH AT 40 MG PO PER DAY FOR 3 DAYS, THEN 30 MG PO PER DAY FOR 3 DAYS, THEN 20
     Route: 048

REACTIONS (1)
  - Eczema [Recovering/Resolving]

NARRATIVE: CASE EVENT DATE: 20250801
